FAERS Safety Report 12067285 (Version 1)
Quarter: 2016Q1

REPORT INFORMATION
  Report Type: Report from Study
  Country: US (occurrence: US)
  Receive Date: 20160211
  Receipt Date: 20160211
  Transmission Date: 20160526
  Serious: No
  Sender: FDA-Public Use
  Company Number: PHEH2016US003254

PATIENT
  Sex: Female

DRUGS (2)
  1. ZYKADIA [Suspect]
     Active Substance: CERITINIB
     Indication: LUNG NEOPLASM MALIGNANT
     Dosage: 5 DF, QD
     Route: 048
     Dates: start: 20151230, end: 20160118
  2. ZYKADIA [Suspect]
     Active Substance: CERITINIB
     Dosage: 4 DF, QD
     Route: 048
     Dates: start: 20160118

REACTIONS (4)
  - Dizziness [Unknown]
  - Vomiting [Unknown]
  - Diarrhoea [Unknown]
  - Nausea [Unknown]
